FAERS Safety Report 8533182-0 (Version None)
Quarter: 2012Q3

REPORT INFORMATION
  Report Type: 
  Country: None (occurrence: None)
  Receive Date: 20120724
  Receipt Date: 20120716
  Transmission Date: 20120928
  Serious: Yes (Hospitalization, Disabling, Other)
  Sender: FDA-Public Use
  Company Number: US-009507513-1111USA02477

PATIENT

DRUGS (5)
  1. FOSAMAX [Suspect]
     Indication: OSTEOPENIA
  2. FOSAMAX [Suspect]
     Dosage: 70 MG, QW
     Route: 048
     Dates: start: 20080505
  3. FOSAMAX [Suspect]
     Indication: OSTEOPOROSIS
     Dosage: 70 MG, QW
     Route: 048
     Dates: start: 20030626, end: 20071002
  4. BONIVA [Suspect]
     Indication: OSTEOPOROSIS
     Dosage: 150 MG, UNK
     Route: 048
     Dates: start: 20050907, end: 20070118
  5. VIVELLE [Concomitant]
     Indication: HORMONE REPLACEMENT THERAPY
     Dosage: UNK UNK, BIW

REACTIONS (55)
  - SKIN DISORDER [None]
  - HEADACHE [None]
  - BURSITIS [None]
  - VITAMIN B12 DEFICIENCY [None]
  - FATIGUE [None]
  - IMPAIRED HEALING [None]
  - PARAESTHESIA [None]
  - GALLBLADDER DISORDER [None]
  - BACK DISORDER [None]
  - HIP FRACTURE [None]
  - ACQUIRED OESOPHAGEAL WEB [None]
  - OSTEOARTHRITIS [None]
  - HYPOAESTHESIA ORAL [None]
  - WEIGHT DECREASED [None]
  - ADVERSE EVENT [None]
  - ANAEMIA [None]
  - HYPERPARATHYROIDISM [None]
  - TEMPOROMANDIBULAR JOINT SYNDROME [None]
  - BRONCHITIS CHRONIC [None]
  - OSTEONECROSIS OF JAW [None]
  - ADENOIDAL DISORDER [None]
  - LACERATION [None]
  - CONSTIPATION [None]
  - FEMORAL NECK FRACTURE [None]
  - VERTIGO [None]
  - ACCIDENT AT HOME [None]
  - GASTRIC POLYPS [None]
  - INTERVERTEBRAL DISC PROTRUSION [None]
  - TOOTH DISORDER [None]
  - ARTHRALGIA [None]
  - PINEAL GLAND CYST [None]
  - FALL [None]
  - FISTULA DISCHARGE [None]
  - EXCORIATION [None]
  - TOOTH ABSCESS [None]
  - DIZZINESS [None]
  - HAEMATOCHEZIA [None]
  - HYPOAESTHESIA [None]
  - SJOGREN'S SYNDROME [None]
  - GASTRITIS HAEMORRHAGIC [None]
  - CHEST DISCOMFORT [None]
  - ARTHRITIS [None]
  - WEIGHT INCREASED [None]
  - SALIVARY GLAND MASS [None]
  - CARPAL TUNNEL SYNDROME [None]
  - HYPERTENSION [None]
  - GASTRITIS [None]
  - BODY HEIGHT DECREASED [None]
  - COLON ADENOMA [None]
  - ABSCESS [None]
  - OTITIS MEDIA [None]
  - HYPERLIPIDAEMIA [None]
  - DUODENITIS [None]
  - OESOPHAGITIS [None]
  - HIATUS HERNIA [None]
